FAERS Safety Report 10846691 (Version 1)
Quarter: 2015Q1

REPORT INFORMATION
  Report Type: Spontaneous
  Country: US (occurrence: US)
  Receive Date: 20150220
  Receipt Date: 20150220
  Transmission Date: 20150721
  Serious: No
  Sender: FDA-Public Use
  Company Number: US-BIOMARINAP-US-2015-105543

PATIENT
  Age: 17 Year
  Sex: Male
  Weight: 60.4 kg

DRUGS (1)
  1. KUVAN [Suspect]
     Active Substance: SAPROPTERIN DIHYDROCHLORIDE
     Indication: PHENYLKETONURIA
     Dosage: 1200 MG, QD
     Route: 048
     Dates: start: 20141223

REACTIONS (1)
  - Medication error [Not Recovered/Not Resolved]

NARRATIVE: CASE EVENT DATE: 20141223
